FAERS Safety Report 22530807 (Version 1)
Quarter: 2023Q2

REPORT INFORMATION
  Report Type: Report from Study
  Country: US (occurrence: US)
  Receive Date: 20230607
  Receipt Date: 20230607
  Transmission Date: 20230722
  Serious: Yes (Other)
  Sender: FDA-Public Use
  Company Number: US-002147023-NVSC2023US126164

PATIENT
  Sex: Female

DRUGS (5)
  1. BETAMETHASONE DIPROPIONATE [Suspect]
     Active Substance: BETAMETHASONE DIPROPIONATE
     Indication: Psoriasis
     Dosage: UNK
     Route: 065
  2. CLINDAMYCIN PHOSPHATE [Suspect]
     Active Substance: CLINDAMYCIN PHOSPHATE
     Indication: Psoriasis
     Dosage: UNK
     Route: 065
  3. FLUOCINONIDE [Suspect]
     Active Substance: FLUOCINONIDE
     Indication: Psoriasis
     Dosage: UNK
     Route: 065
  4. DOXYCYCLINE HYCLATE [Suspect]
     Active Substance: DOXYCYCLINE HYCLATE
     Indication: Psoriasis
     Dosage: UNK
     Route: 065
  5. HUMIRA [Suspect]
     Active Substance: ADALIMUMAB
     Indication: Product used for unknown indication
     Dosage: UNK
     Route: 065

REACTIONS (12)
  - Haemorrhage [Unknown]
  - Hidradenitis [Unknown]
  - Pruritus [Unknown]
  - Erythema [Unknown]
  - Pain [Unknown]
  - Acne [Unknown]
  - Papule [Unknown]
  - Pustule [Unknown]
  - Scar [Unknown]
  - Dry skin [Unknown]
  - Psoriasis [Unknown]
  - Drug ineffective [Unknown]
